FAERS Safety Report 11247264 (Version 1)
Quarter: 2015Q3

REPORT INFORMATION
  Report Type: Spontaneous
  Country: US (occurrence: US)
  Receive Date: 20150708
  Receipt Date: 20150708
  Transmission Date: 20151125
  Serious: Yes (Hospitalization, Other)
  Sender: FDA-Public Use
  Company Number: US-PFIZER INC-2015221442

PATIENT
  Sex: Female

DRUGS (3)
  1. VANCOMYCIN [Suspect]
     Active Substance: VANCOMYCIN
     Indication: CELLULITIS ORBITAL
  2. KEFLEX [Suspect]
     Active Substance: CEPHALEXIN
     Dosage: 500 MG, 4X/DAY
  3. CLINDAMYCIN HCL [Suspect]
     Active Substance: CLINDAMYCIN HYDROCHLORIDE
     Dosage: 300 MG, UNK (TWO TO THREE TIMES A DAY)

REACTIONS (5)
  - Staphylococcal infection [Unknown]
  - Cellulitis orbital [Unknown]
  - Swelling [Unknown]
  - Disease recurrence [Unknown]
  - Feeling abnormal [Unknown]
